FAERS Safety Report 20134764 (Version 1)
Quarter: 2021Q4

REPORT INFORMATION
  Report Type: Spontaneous
  Country: US (occurrence: None)
  Receive Date: 20211201
  Receipt Date: 20211201
  Transmission Date: 20220303
  Serious: No
  Sender: FDA-Public Use
  Company Number: US-Merck Healthcare KGaA-9280433

PATIENT
  Sex: Male

DRUGS (1)
  1. SEROSTIM [Suspect]
     Active Substance: SOMATROPIN
     Indication: Testicular failure
     Route: 058
     Dates: start: 20200221

REACTIONS (3)
  - Ill-defined disorder [Unknown]
  - Off label use [Unknown]
  - Product availability issue [Unknown]
